FAERS Safety Report 6471927-4 (Version None)
Quarter: 2009Q4

REPORT INFORMATION
  Report Type: 
  Country: None (occurrence: None)
  Receive Date: 20091203
  Receipt Date: 20080818
  Transmission Date: 20100525
  Serious: Yes (Hospitalization)
  Sender: FDA-Public Use
  Company Number: DK-ELI_LILLY_AND_COMPANY-DK200804001810

PATIENT
  Sex: Male
  Weight: 63.7 kg

DRUGS (4)
  1. STRATTERA [Suspect]
     Indication: ATTENTION DEFICIT/HYPERACTIVITY DISORDER
     Dosage: 40 MG, DAILY (1/D)
     Route: 048
     Dates: start: 20080111
  2. STRATTERA [Suspect]
     Dosage: 60 MG, DAILY (1/D)
     Route: 048
  3. RISPERDAL [Concomitant]
     Indication: TIC
     Dosage: UNK, (1.5MG +0MG +1MG) UNKNOWN
     Route: 065
     Dates: start: 20080111, end: 20080326
  4. RISPERDAL [Concomitant]
     Dosage: 0.5 MG, QOD
     Route: 065
     Dates: start: 20080328

REACTIONS (1)
  - VENTRICULAR EXTRASYSTOLES [None]
